FAERS Safety Report 8119978-8 (Version None)
Quarter: 2012Q1

REPORT INFORMATION
  Report Type: 
  Country: None (occurrence: None)
  Receive Date: 20120206
  Receipt Date: 20120206
  Transmission Date: 20120608
  Serious: Yes (Other)
  Sender: FDA-Public Use
  Company Number: None

PATIENT
  Sex: Female
  Weight: 117.9352 kg

DRUGS (3)
  1. METFORMIN HCL [Suspect]
     Indication: DIABETES MELLITUS
     Dosage: ONE TABLET 2X DAILY TWICE DAILY
     Dates: start: 20111001, end: 20111201
  2. GLIMEPIRIDE [Suspect]
     Indication: FLATULENCE
     Dosage: 1 SOFTGEL AS NEEDED 3X WEEKLY
     Dates: start: 20090101, end: 20120101
  3. GLIMEPIRIDE [Suspect]
     Indication: DYSPEPSIA
     Dosage: 1 SOFTGEL AS NEEDED 3X WEEKLY
     Dates: start: 20090101, end: 20120101

REACTIONS (4)
  - HEADACHE [None]
  - ABDOMINAL PAIN [None]
  - DYSPEPSIA [None]
  - FLATULENCE [None]
